FAERS Safety Report 4880447-X (Version None)
Quarter: 2005Q4

REPORT INFORMATION
  Report Type: 
  Country: None (occurrence: None)
  Receive Date: 20051223
  Receipt Date: 20051129
  Transmission Date: 20060501
  Serious: No
  Sender: FDA-Public Use
  Company Number: 05P-163-0318219-00

PATIENT
  Age: 50 Year
  Sex: Female

DRUGS (5)
  1. HUMIRA                    (ADALIMUMAB) [Suspect]
     Indication: RHEUMATOID ARTHRITIS
     Dosage: 40 MG, 1 IN 2 WK, SUBCUTANEOUS
     Route: 058
     Dates: start: 20051102
  2. VOLTAREN [Concomitant]
  3. METHOTREXATE [Concomitant]
  4. LEFLUNOMIDE [Concomitant]
  5. PREDNISONE [Concomitant]

REACTIONS (2)
  - DERMATITIS CONTACT [None]
  - PATHOLOGICAL FRACTURE [None]
